FAERS Safety Report 7748879-X (Version None)
Quarter: 2011Q3

REPORT INFORMATION
  Report Type: 
  Country: None (occurrence: None)
  Receive Date: 20110914
  Receipt Date: 20100413
  Transmission Date: 20111222
  Serious: No
  Sender: FDA-Public Use
  Company Number: US-BAYER-201020608NA

PATIENT
  Age: 27 Year
  Sex: Female

DRUGS (2)
  1. CLINDAMYCIN [Concomitant]
     Indication: TOOTH ABSCESS
     Dosage: UNK
     Dates: start: 20100401
  2. MIRENA [Suspect]
     Indication: CONTRACEPTION
     Dosage: 20 ?G/D, CONT
     Route: 015
     Dates: start: 20080410

REACTIONS (4)
  - NAUSEA [None]
  - OEDEMA PERIPHERAL [None]
  - BREAST TENDERNESS [None]
  - ABDOMINAL PAIN [None]
